FAERS Safety Report 9010524 (Version 3)
Quarter: 2013Q2

REPORT INFORMATION
  Report Type: Report from Study
  Country: ES (occurrence: ES)
  Receive Date: 20130109
  Receipt Date: 20130412
  Transmission Date: 20140414
  Serious: Yes (Hospitalization)
  Sender: FDA-Public Use
  Company Number: ES-EISAI INC-E7389-03419-CLI-ES

PATIENT
  Age: 55 Year
  Sex: Male
  Weight: 56 kg

DRUGS (1)
  1. E7389 (BOLD) [Suspect]
     Indication: SARCOMA
     Route: 041
     Dates: start: 20121213, end: 20130305

REACTIONS (1)
  - Pneumonia [Recovered/Resolved]
